FAERS Safety Report 6034898-0 (Version None)
Quarter: 2009Q1

REPORT INFORMATION
  Report Type: 
  Country: None (occurrence: None)
  Receive Date: 20090112
  Receipt Date: 20090105
  Transmission Date: 20090719
  Serious: Yes (Other)
  Sender: FDA-Public Use
  Company Number: US-CELGENEUS-163-20785-08120421

PATIENT
  Sex: Female

DRUGS (2)
  1. THALOMID [Suspect]
     Indication: MULTIPLE MYELOMA
     Route: 048
     Dates: start: 20060315, end: 20060901
  2. THALOMID [Suspect]
     Route: 048
     Dates: start: 20051018, end: 20060201

REACTIONS (4)
  - ARTHRITIS [None]
  - FALL [None]
  - NEUROPATHY PERIPHERAL [None]
  - WRIST FRACTURE [None]
